FAERS Safety Report 24806179 (Version 1)
Quarter: 2025Q1

REPORT INFORMATION
  Report Type: Spontaneous
  Country: ES (occurrence: ES)
  Receive Date: 20250103
  Receipt Date: 20250103
  Transmission Date: 20250409
  Serious: Yes (Life-Threatening, Other)
  Sender: B BRAUN
  Company Number: ES-B.Braun Medical Inc.-2168365

PATIENT
  Age: 67 Year
  Sex: Male

DRUGS (6)
  1. ACETAMINOPHEN [Suspect]
     Active Substance: ACETAMINOPHEN
     Indication: Surgery
     Dates: start: 20241106
  2. MIDAZOLAM [Suspect]
     Active Substance: MIDAZOLAM
  3. METAMIZOLE [Suspect]
     Active Substance: METAMIZOLE
  4. AMOXICILLIN [Suspect]
     Active Substance: AMOXICILLIN
  5. ARTICAINE\EPINEPHRINE [Suspect]
     Active Substance: ARTICAINE\EPINEPHRINE
  6. FENTANYL [Suspect]
     Active Substance: FENTANYL

REACTIONS (2)
  - Anaphylactic shock [Recovered/Resolved]
  - Kounis syndrome [Recovered/Resolved]
